FAERS Safety Report 4648320-X (Version None)
Quarter: 2005Q2

REPORT INFORMATION
  Report Type: 
  Country: None (occurrence: None)
  Receive Date: 20050427
  Receipt Date: 20050427
  Transmission Date: 20051028
  Serious: Yes (Death)
  Sender: FDA-Public Use
  Company Number: None

PATIENT
  Age: 34 Year
  Sex: Female
  Weight: 83.4619 kg

DRUGS (8)
  1. TAXOL [Suspect]
     Indication: CORONARY ARTERY ATHEROSCLEROSIS
  2. TOPROL-XL [Concomitant]
  3. LIPITOR [Concomitant]
  4. ZETIA [Concomitant]
  5. DIOVAN [Concomitant]
  6. HYDROCHLOROTHIAZIDE [Concomitant]
  7. ASPIRIN [Concomitant]
  8. PREVACID [Concomitant]

REACTIONS (2)
  - MYOCARDITIS [None]
  - SUDDEN DEATH [None]
